FAERS Safety Report 7209827-4 (Version None)
Quarter: 2011Q1

REPORT INFORMATION
  Report Type: 
  Country: None (occurrence: None)
  Receive Date: 20110104
  Receipt Date: 20101231
  Transmission Date: 20110831
  Serious: Yes (Death)
  Sender: FDA-Public Use
  Company Number: US-ASTRAZENECA-2011SE00113

PATIENT
  Age: 30 Year
  Sex: Female

DRUGS (4)
  1. TRAZODONE [Suspect]
     Route: 048
  2. BUPROPION [Suspect]
     Route: 048
  3. ETHANOL [Suspect]
     Route: 048
  4. QUETIAPINE [Suspect]
     Route: 048

REACTIONS (2)
  - COMPLETED SUICIDE [None]
  - TOXICITY TO VARIOUS AGENTS [None]
